FAERS Safety Report 7233116-5 (Version None)
Quarter: 2011Q1

REPORT INFORMATION
  Report Type: 
  Country: None (occurrence: None)
  Receive Date: 20110119
  Receipt Date: 20110110
  Transmission Date: 20110831
  Serious: Yes (Hospitalization)
  Sender: FDA-Public Use
  Company Number: FR-ASTRAZENECA-2008CG00101

PATIENT
  Age: 26688 Day
  Sex: Female

DRUGS (10)
  1. THALIDOMIDE [Suspect]
     Indication: MULTIPLE MYELOMA
     Route: 048
     Dates: start: 20070419, end: 20070423
  2. ATACAND [Suspect]
     Indication: HYPERTENSION
     Route: 048
  3. THALIDOMIDE [Suspect]
     Route: 048
     Dates: start: 20070606
  4. CRESTOR [Concomitant]
     Indication: DYSLIPIDAEMIA
     Route: 048
  5. THALIDOMIDE [Suspect]
     Route: 048
     Dates: start: 20070501, end: 20070605
  6. DEXAMETHASONE [Suspect]
     Indication: MULTIPLE MYELOMA
     Dosage: 40 MG DAILY FOUR CONSECUTIVE DAYS A MONTH
     Route: 048
     Dates: start: 20070419
  7. LEXOMIL [Suspect]
     Indication: ANXIETY
     Dosage: 0.25 DF FOUR CONSECUTIVE DAYS A MONTH (TOGETHER WITH DEXAMETHASONE)
     Route: 048
  8. GRANOCYTE [Concomitant]
  9. MELPHALAN [Concomitant]
     Dates: start: 20061101
  10. ARANESP [Suspect]
     Indication: ANAEMIA
     Route: 058
     Dates: start: 20070201, end: 20071102

REACTIONS (4)
  - TRANSIENT ISCHAEMIC ATTACK [None]
  - HYPERTENSION [None]
  - GASTROENTERITIS [None]
  - DRUG INTOLERANCE [None]
